FAERS Safety Report 15538013 (Version 1)
Quarter: 2018Q4

REPORT INFORMATION
  Report Type: Spontaneous
  Country: RO (occurrence: RO)
  Receive Date: 20181022
  Receipt Date: 20181022
  Transmission Date: 20190205
  Serious: Yes (Hospitalization)
  Sender: FDA-Public Use
  Company Number: RO-PFIZER INC-2018432225

PATIENT
  Age: 60 Year
  Sex: Female
  Weight: 87 kg

DRUGS (6)
  1. TERTENSIF [Concomitant]
     Active Substance: INDAPAMIDE
     Dosage: 1.5 MG, 1X/DAY, IN THE MORNING
  2. TENAXUM [Concomitant]
     Active Substance: RILMENIDINE
     Dosage: 1 MG, 1X/DAY, AT NOON
  3. LORISTA [Concomitant]
     Active Substance: LOSARTAN POTASSIUM
     Dosage: 50 MG, 1X/DAY, IN THE EVENING
  4. SUTENT [Suspect]
     Active Substance: SUNITINIB MALATE
     Indication: RENAL CANCER
     Dosage: 50 MG, CYCLIC, 28 DAYS OF TREATMENT WITH 14 DAYS OF PAUSE
     Dates: start: 20160511, end: 20181015
  5. ZALDIAR [Concomitant]
     Active Substance: ACETAMINOPHEN\TRAMADOL HYDROCHLORIDE
     Dosage: 37.5 MG, ONE CAPSULE AS NEEDED
  6. ALANERV [Concomitant]
     Active Substance: DIETARY SUPPLEMENT
     Dosage: UNK UNK, 2X/DAY, IN THE MORNING AND IN THE EVENING

REACTIONS (1)
  - Hernial eventration [Unknown]

NARRATIVE: CASE EVENT DATE: 20181015
